FAERS Safety Report 10786199 (Version 1)
Quarter: 2015Q1

REPORT INFORMATION
  Report Type: Spontaneous
  Country: US (occurrence: US)
  Receive Date: 20150211
  Receipt Date: 20150211
  Transmission Date: 20150721
  Serious: Yes (Other)
  Sender: FDA-Public Use
  Company Number: US-BAXTER-2015BAX007051

PATIENT
  Sex: Male

DRUGS (6)
  1. FEIBA [Suspect]
     Active Substance: ANTI-INHIBITOR COAGULANT COMPLEX
     Indication: FACTOR VIII DEFICIENCY
  2. ADVATE [Suspect]
     Active Substance: ANTIHEMOPHILIC FACTOR, HUMAN RECOMBINANT
     Indication: FACTOR VIII DEFICIENCY
  3. ADVATE [Suspect]
     Active Substance: ANTIHEMOPHILIC FACTOR, HUMAN RECOMBINANT
     Indication: IMMUNE TOLERANCE INDUCTION
     Dosage: 100 UNITS/KG
     Route: 065
  4. FEIBA [Suspect]
     Active Substance: ANTI-INHIBITOR COAGULANT COMPLEX
     Indication: IMMUNE TOLERANCE INDUCTION
     Dosage: 70 UNITS/KG
     Route: 065
  5. PLASMA-DERIVED FVIII/VWF CONCENTRATE [Suspect]
     Active Substance: HUMAN COAGULATION FACTOR VIII/VON WILLEBRAND FACTOR COMPLEX
     Indication: DRUG INTOLERANCE
     Dosage: 200 UNITS/KG
     Route: 065
  6. PLASMA-DERIVED FVIII/VWF CONCENTRATE [Suspect]
     Active Substance: HUMAN COAGULATION FACTOR VIII/VON WILLEBRAND FACTOR COMPLEX
     Dosage: 100 UNITS/KG
     Route: 065

REACTIONS (7)
  - Drug intolerance [Unknown]
  - Device related infection [Unknown]
  - Staphylococcal infection [Unknown]
  - Haemorrhage [Unknown]
  - Pulmonary embolism [Recovered/Resolved]
  - Infection [Unknown]
  - Vena cava thrombosis [None]
